FAERS Safety Report 5379723-6 (Version None)
Quarter: 2007Q3

REPORT INFORMATION
  Report Type: 
  Country: None (occurrence: None)
  Receive Date: 20070706
  Receipt Date: 20070629
  Transmission Date: 20080115
  Serious: Yes (Disabling)
  Sender: FDA-Public Use
  Company Number: PHBS2007DK11123

PATIENT
  Sex: Female

DRUGS (2)
  1. ZOMETA [Suspect]
     Indication: METASTASES TO BONE
     Route: 042
     Dates: start: 20050507, end: 20060627
  2. BONDRONAT [Concomitant]
     Indication: METASTASES TO BONE
     Dosage: 50 MG, QD
     Route: 048
     Dates: start: 20061102, end: 20070315

REACTIONS (1)
  - OSTEONECROSIS [None]
